FAERS Safety Report 23819965 (Version 1)
Quarter: 2024Q2

REPORT INFORMATION
  Report Type: Spontaneous
  Country: KR (occurrence: KR)
  Receive Date: 20240506
  Receipt Date: 20240506
  Transmission Date: 20240716
  Serious: Yes (Hospitalization)
  Sender: FDA-Public Use
  Company Number: KR-Accord-422599

PATIENT
  Age: 75 Year
  Sex: Male

DRUGS (8)
  1. DEXMEDETOMIDINE HYDROCHLORIDE [Suspect]
     Active Substance: DEXMEDETOMIDINE HYDROCHLORIDE
     Indication: Heart rate decreased
     Dosage: MAINTAINED AT 0.4 UG/KG/MIN
  2. PHENYLEPHRINE HCL [Concomitant]
     Active Substance: PHENYLEPHRINE HYDROCHLORIDE
     Indication: Blood pressure measurement
  3. ETOMIDATE [Concomitant]
     Active Substance: ETOMIDATE
     Indication: Anaesthesia
  4. REMIFENTANIL HYDROCHLORIDE [Concomitant]
     Active Substance: REMIFENTANIL HYDROCHLORIDE
     Indication: Anaesthesia
     Dosage: 0.1-0.2 UG/KG/MIN
  5. ROCURONIUM BROMIDE [Concomitant]
     Active Substance: ROCURONIUM BROMIDE
     Indication: Anaesthesia
  6. SEVOFLURANE [Concomitant]
     Active Substance: SEVOFLURANE
     Indication: Anaesthesia
  7. DILTIAZEM [Concomitant]
     Active Substance: DILTIAZEM
     Indication: Heart rate decreased
  8. ESMOLOL [Concomitant]
     Active Substance: ESMOLOL HYDROCHLORIDE
     Indication: Heart rate decreased
     Dosage: TWICE

REACTIONS (1)
  - Delayed recovery from anaesthesia [Recovered/Resolved]
